FAERS Safety Report 6358443-5 (Version None)
Quarter: 2009Q3

REPORT INFORMATION
  Report Type: 
  Country: None (occurrence: None)
  Receive Date: 20090916
  Receipt Date: 20090727
  Transmission Date: 20100115
  Serious: No
  Sender: FDA-Public Use
  Company Number: US-AMGEN-KDL357525

PATIENT
  Sex: Female

DRUGS (7)
  1. NEUPOGEN [Suspect]
     Indication: CHEMOTHERAPY
     Dates: start: 20090601
  2. NEULASTA [Suspect]
     Indication: CHEMOTHERAPY
  3. GEMCITABINE [Concomitant]
     Dates: start: 20090601
  4. CISPLATIN [Concomitant]
     Dates: start: 20090601
  5. FLUOROURACIL [Concomitant]
     Dates: start: 20090601
  6. LEUCOVORIN CALCIUM [Concomitant]
     Dates: start: 20090601
  7. IRINOTECAN HCL [Concomitant]
     Dates: start: 20090601

REACTIONS (3)
  - ANAEMIA [None]
  - WHITE BLOOD CELL COUNT DECREASED [None]
  - WHITE BLOOD CELL COUNT INCREASED [None]
